FAERS Safety Report 7880378-7 (Version None)
Quarter: 2011Q4

REPORT INFORMATION
  Report Type: 
  Country: None (occurrence: None)
  Receive Date: 20111101
  Receipt Date: 20111025
  Transmission Date: 20120403
  Serious: Yes (Hospitalization)
  Sender: FDA-Public Use
  Company Number: PHHY2011IT94110

PATIENT
  Sex: Male

DRUGS (3)
  1. METOPROLOL TARTRATE [Suspect]
  2. LOSARTAN POTASSIUM [Suspect]
  3. PERINDOPRIL ERBUMINE [Suspect]

REACTIONS (2)
  - HYPERKALAEMIA [None]
  - RENAL FAILURE ACUTE [None]
